FAERS Safety Report 7825264-3 (Version None)
Quarter: 2011Q4

REPORT INFORMATION
  Report Type: 
  Country: None (occurrence: None)
  Receive Date: 20111019
  Receipt Date: 20111014
  Transmission Date: 20120403
  Serious: Yes (Other)
  Sender: FDA-Public Use
  Company Number: US-GLAXOSMITHKLINE-A0946332A

PATIENT
  Age: 70 Year
  Sex: Male
  Weight: 94.1 kg

DRUGS (6)
  1. ZESTORETIC [Concomitant]
  2. VOTRIENT [Suspect]
     Indication: RENAL CELL CARCINOMA
     Dosage: 600MG PER DAY
     Route: 048
     Dates: start: 20101019, end: 20110101
  3. LORTAB [Concomitant]
  4. ZANTAC [Concomitant]
  5. PRAVACHOL [Concomitant]
  6. LOPRESSOR [Concomitant]

REACTIONS (1)
  - RENAL CANCER [None]
